FAERS Safety Report 15037198 (Version 1)
Quarter: 2018Q2

REPORT INFORMATION
  Report Type: Spontaneous
  Country: HR (occurrence: HR)
  Receive Date: 20180620
  Receipt Date: 20180620
  Transmission Date: 20180711
  Serious: Yes (Other)
  Sender: FDA-Public Use
  Company Number: HR-BAYER-2018-116092

PATIENT
  Age: 16 Year
  Sex: Female

DRUGS (2)
  1. NORMABEL [Suspect]
     Active Substance: DIAZEPAM
     Indication: PRODUCT USED FOR UNKNOWN INDICATION
     Dosage: 145 MG, ONCE
     Route: 048
     Dates: start: 20171222, end: 20171222
  2. ASPIRIN. [Suspect]
     Active Substance: ASPIRIN
     Dosage: 6500 MG, ONCE
     Route: 048
     Dates: start: 20171222, end: 20171222

REACTIONS (3)
  - Intentional overdose [Unknown]
  - Suicide attempt [Unknown]
  - Somnolence [Unknown]

NARRATIVE: CASE EVENT DATE: 20171222
